FAERS Safety Report 8196584-0 (Version None)
Quarter: 2012Q1

REPORT INFORMATION
  Report Type: 
  Country: None (occurrence: None)
  Receive Date: 20120309
  Receipt Date: 20120301
  Transmission Date: 20120608
  Serious: Yes (Other)
  Sender: FDA-Public Use
  Company Number: IE-US-EMD SERONO, INC.-7114280

PATIENT
  Sex: Female

DRUGS (11)
  1. CIPRAGER [Suspect]
     Indication: DEPRESSION
  2. LOPRAZ (OMEPRAZOLE) [Concomitant]
     Indication: HYPERCHLORHYDRIA
  3. JANUVIA [Suspect]
     Indication: BLOOD GLUCOSE
  4. CARDIAC MEDICATION [Concomitant]
     Indication: CARDIAC DISORDER
     Dates: end: 20120206
  5. FLUTICASONE PROPIONATE/SALMETEROL [Concomitant]
     Indication: PRODUCT USED FOR UNKNOWN INDICATION
     Route: 045
  6. DIAMICRON MR [Suspect]
     Indication: BLOOD GLUCOSE
  7. VALPROIC ACID [Concomitant]
     Indication: PRODUCT USED FOR UNKNOWN INDICATION
  8. EPILIN (EPILIM) [Concomitant]
     Indication: EPILEPSY
  9. FLORINEF [Concomitant]
     Indication: PRODUCT USED FOR UNKNOWN INDICATION
  10. REBIF [Suspect]
     Indication: RELAPSING-REMITTING MULTIPLE SCLEROSIS
     Route: 058
     Dates: start: 20110718, end: 20120206
  11. REBIF [Suspect]
     Route: 058
     Dates: start: 20120301

REACTIONS (6)
  - FEELING COLD [None]
  - LOWER RESPIRATORY TRACT INFECTION [None]
  - CHILLS [None]
  - HEADACHE [None]
  - TREATMENT NONCOMPLIANCE [None]
  - COUGH [None]
